FAERS Safety Report 23999609 (Version 1)
Quarter: 2024Q2

REPORT INFORMATION
  Report Type: Spontaneous
  Country: JP (occurrence: JP)
  Receive Date: 20240621
  Receipt Date: 20240621
  Transmission Date: 20240716
  Serious: Yes (Hospitalization)
  Sender: FDA-Public Use
  Company Number: JP-CHUGAI-2024020265

PATIENT
  Age: 8 Decade
  Sex: Female

DRUGS (3)
  1. ROZLYTREK [Suspect]
     Active Substance: ENTRECTINIB
     Indication: Non-small cell lung cancer
     Dosage: 600MG/DAY
     Route: 050
  2. ROZLYTREK [Suspect]
     Active Substance: ENTRECTINIB
     Dosage: 400MG/DAY
     Route: 050
  3. ROZLYTREK [Suspect]
     Active Substance: ENTRECTINIB
     Dosage: 200MG/DAY
     Route: 050

REACTIONS (3)
  - Necrotising oesophagitis [Unknown]
  - Oesophageal ulcer [Unknown]
  - Renal disorder [Unknown]
